FAERS Safety Report 9295479 (Version 1)
Quarter: 2013Q2

REPORT INFORMATION
  Report Type: Spontaneous
  Country: US (occurrence: None)
  Receive Date: 20130516
  Receipt Date: 20130516
  Transmission Date: 20140414
  Serious: Yes (Hospitalization)
  Sender: FDA-Public Use
  Company Number: None

PATIENT
  Age: 92 Year
  Sex: Female
  Weight: 59.55 kg

DRUGS (1)
  1. CARBOPLATIN [Suspect]
     Dosage: CARBOPLATIN AUC 5* IV OVER 30 MINUTES EVERY 3 WEEKS X 4
     Dates: start: 20121003

REACTIONS (17)
  - Aortic dissection [None]
  - Mental status changes [None]
  - Aortic aneurysm [None]
  - Ovarian neoplasm [None]
  - Metabolic encephalopathy [None]
  - Urinary tract infection [None]
  - Faecaloma [None]
  - Atelectasis [None]
  - Pulmonary oedema [None]
  - Pneumonia [None]
  - Anaemia [None]
  - Aortic arteriosclerosis [None]
  - Pleural effusion [None]
  - Candida infection [None]
  - Muscle strain [None]
  - Osteoarthritis [None]
  - Exostosis [None]
